FAERS Safety Report 6626325-7 (Version None)
Quarter: 2010Q1

REPORT INFORMATION
  Report Type: 
  Country: None (occurrence: None)
  Receive Date: 20100310
  Receipt Date: 20100305
  Transmission Date: 20100710
  Serious: Yes (Death, Other)
  Sender: FDA-Public Use
  Company Number: GB-ROXANE LABORATORIES, INC.-2010-RO-00236RO

PATIENT
  Age: 3 Month
  Sex: Male
  Weight: 5 kg

DRUGS (2)
  1. METHADONE HYDROCHLORIDE [Suspect]
  2. DIAZEPAM [Suspect]

REACTIONS (6)
  - BRONCHOPNEUMONIA [None]
  - DRUG TOXICITY [None]
  - INTERSTITIAL LUNG DISEASE [None]
  - PETECHIAE [None]
  - PLEURAL HAEMORRHAGE [None]
  - RESPIRATORY DEPRESSION [None]
